FAERS Safety Report 16244721 (Version 3)
Quarter: 2019Q2

REPORT INFORMATION
  Report Type: Spontaneous
  Country: AU (occurrence: AU)
  Receive Date: 20190426
  Receipt Date: 20190510
  Transmission Date: 20190711
  Serious: Yes (Other)
  Sender: FDA-Public Use
  Company Number: AU-PFIZER INC-2019173470

PATIENT
  Age: 82 Year
  Sex: Male

DRUGS (5)
  1. ATENOLOL. [Concomitant]
     Active Substance: ATENOLOL
     Indication: CAROTID ARTERY DISEASE
     Dosage: 50 MG MANE (IN THE MORNING)
     Dates: start: 2012
  2. SILYMARIN [Concomitant]
     Active Substance: DIETARY SUPPLEMENT\HERBALS\MILK THISTLE
     Dosage: UNK
  3. ATORVASTATIN CALCIUM. [Suspect]
     Active Substance: ATORVASTATIN CALCIUM
     Indication: MYOCARDIAL ISCHAEMIA
     Dosage: 80 MG NOCTE (AT NIGHT)
     Dates: start: 2012, end: 201805
  4. SIBERIAN GINSENG (ELEUTHEROCOCCUS SENTICOSUS) [Interacting]
     Active Substance: ELEUTHERO\HERBALS
     Dosage: 1 DF, 1X/DAY
     Dates: start: 201701, end: 201805
  5. ASPIRIN. [Concomitant]
     Active Substance: ASPIRIN
     Indication: HYPERCHOLESTEROLAEMIA
     Dosage: 100 MG MANE (IN THE MORNING)
     Dates: start: 2012

REACTIONS (3)
  - Drug interaction [Recovering/Resolving]
  - Drug-induced liver injury [Recovered/Resolved]
  - Myositis [Recovering/Resolving]

NARRATIVE: CASE EVENT DATE: 2017
